FAERS Safety Report 9188273 (Version 2)
Quarter: 2013Q3

REPORT INFORMATION
  Report Type: Report from Study
  Country: CL (occurrence: CL)
  Receive Date: 20130325
  Receipt Date: 20130702
  Transmission Date: 20140515
  Serious: Yes (Hospitalization)
  Sender: FDA-Public Use
  Company Number: CL-BRISTOL-MYERS SQUIBB COMPANY-17227257

PATIENT
  Age: 65 Year
  Sex: Female

DRUGS (10)
  1. ORENCIA [Suspect]
     Indication: RHEUMATOID ARTHRITIS
     Dosage: NEXT APPLICATION 20JUN2013.
     Dates: start: 20120624
  2. PREDNISONE [Concomitant]
  3. LOSARTAN [Concomitant]
  4. ASPIRIN [Concomitant]
  5. OMEPRAZOLE [Concomitant]
  6. ZOPICLONE [Concomitant]
  7. TRAMADOL [Concomitant]
  8. DIPYRONE [Concomitant]
  9. PARACETAMOL [Concomitant]
     Route: 042
  10. AZATHIOPRINE [Concomitant]

REACTIONS (4)
  - Arthropathy [Unknown]
  - Musculoskeletal pain [Unknown]
  - Arthralgia [Unknown]
  - Nodule [Unknown]
